FAERS Safety Report 15578851 (Version 5)
Quarter: 2019Q1

REPORT INFORMATION
  Report Type: Report from Study
  Country: None (occurrence: CA)
  Receive Date: 20181102
  Receipt Date: 20190131
  Transmission Date: 20190417
  Serious: Yes (Hospitalization, Other)
  Sender: FDA-Public Use
  Company Number: CA-ABBVIE-18K-028-2475942-00

PATIENT
  Age: 67 Year
  Sex: Male

DRUGS (2)
  1. HUMIRA [Suspect]
     Active Substance: ADALIMUMAB
     Route: 058
  2. HUMIRA [Suspect]
     Active Substance: ADALIMUMAB
     Indication: CROHN^S DISEASE
     Route: 058
     Dates: start: 20160628, end: 201901

REACTIONS (11)
  - Urine abnormality [Not Recovered/Not Resolved]
  - Prostatomegaly [Not Recovered/Not Resolved]
  - Urinary incontinence [Not Recovered/Not Resolved]
  - Gastroenterostomy [Unknown]
  - Bladder catheter temporary [Unknown]
  - Abdominal pain upper [Not Recovered/Not Resolved]
  - Stoma site haemorrhage [Recovered/Resolved]
  - Rectal discharge [Not Recovered/Not Resolved]
  - Medical device site scab [Unknown]
  - Urinary bladder haemorrhage [Not Recovered/Not Resolved]
  - Complication associated with device [Unknown]

NARRATIVE: CASE EVENT DATE: 2016
